FAERS Safety Report 18997965 (Version 3)
Quarter: 2021Q4

REPORT INFORMATION
  Report Type: Spontaneous
  Country: US (occurrence: US)
  Receive Date: 20210311
  Receipt Date: 20211001
  Transmission Date: 20220304
  Serious: Yes (Other)
  Sender: FDA-Public Use
  Company Number: US-PFIZER INC-2020509608

PATIENT
  Sex: Female

DRUGS (6)
  1. PREVACID 24 HR [Suspect]
     Active Substance: LANSOPRAZOLE
     Indication: Gastrooesophageal reflux disease
     Dosage: 15 MG, UNKNOWN
     Route: 065
     Dates: start: 201501, end: 201810
  2. PREVACID [Suspect]
     Active Substance: LANSOPRAZOLE
     Indication: Gastrooesophageal reflux disease
     Dosage: 30 MG, UNKNOWN
     Route: 065
     Dates: start: 200001, end: 201810
  3. NEXIUM [Suspect]
     Active Substance: ESOMEPRAZOLE MAGNESIUM
     Indication: Gastrooesophageal reflux disease
     Dosage: 40 MG, UNKNOWN
     Route: 065
     Dates: start: 200001, end: 201810
  4. NEXIUM 24HR [Suspect]
     Active Substance: ESOMEPRAZOLE MAGNESIUM
     Indication: Gastrooesophageal reflux disease
     Dosage: 20 MG, UNKNOWN
     Route: 065
     Dates: start: 201501, end: 201810
  5. PRILOSEC [Suspect]
     Active Substance: OMEPRAZOLE MAGNESIUM
     Indication: Gastrooesophageal reflux disease
     Dosage: 40 MG, UNKNOWN
     Route: 065
     Dates: start: 200001, end: 201810
  6. PRILOSEC [Suspect]
     Active Substance: OMEPRAZOLE MAGNESIUM
     Indication: Gastrooesophageal reflux disease
     Dosage: 20 MG, UNKNOWN
     Route: 065
     Dates: start: 201501, end: 201810

REACTIONS (1)
  - End stage renal disease [Not Recovered/Not Resolved]
